FAERS Safety Report 13464539 (Version 1)
Quarter: 2017Q2

REPORT INFORMATION
  Report Type: Spontaneous
  Country: US (occurrence: US)
  Receive Date: 20170420
  Receipt Date: 20170420
  Transmission Date: 20170830
  Serious: Yes (Other)
  Sender: FDA-Public Use
  Company Number: US-ROCHE-724527

PATIENT
  Age: 16 Year
  Sex: Male
  Weight: 90.7 kg

DRUGS (2)
  1. ACCUTANE [Suspect]
     Active Substance: ISOTRETINOIN
     Route: 065
     Dates: start: 20010313, end: 200106
  2. ACCUTANE [Suspect]
     Active Substance: ISOTRETINOIN
     Indication: ACNE
     Route: 065
     Dates: start: 20010115, end: 20010312

REACTIONS (7)
  - Vision blurred [Unknown]
  - Dry skin [Unknown]
  - Gastrointestinal injury [Unknown]
  - Large intestinal ulcer [Recovering/Resolving]
  - Inflammatory bowel disease [Unknown]
  - Blood triglycerides increased [Unknown]
  - Lip dry [Unknown]

NARRATIVE: CASE EVENT DATE: 20010212
